FAERS Safety Report 7267560-7 (Version None)
Quarter: 2011Q1

REPORT INFORMATION
  Report Type: 
  Country: None (occurrence: None)
  Receive Date: 20110201
  Receipt Date: 20110124
  Transmission Date: 20110831
  Serious: Yes (Hospitalization, Other)
  Sender: FDA-Public Use
  Company Number: US-ELI_LILLY_AND_COMPANY-US200910004057

PATIENT
  Sex: Male
  Weight: 113.38 kg

DRUGS (16)
  1. METFORMIN HCL [Concomitant]
     Indication: DIABETES MELLITUS
     Dosage: 1000 MG, 2/D
     Route: 048
  2. SPIRIVA [Concomitant]
     Dosage: 18 U, DAILY (1/D)
     Route: 055
  3. PRAVASTATIN [Concomitant]
     Dosage: 40 MG, DAILY (1/D)
     Route: 048
  4. LOVENOX [Concomitant]
     Dosage: 40 MG, EACH EVENING
     Route: 058
  5. ABILIFY [Concomitant]
  6. ALBUTEROL [Concomitant]
     Dosage: UNK, AS NEEDED
  7. PROAIR HFA [Concomitant]
     Dosage: 90 U, AS NEEDED
     Route: 055
  8. AMLODIPINE [Concomitant]
     Dosage: 5 MG, DAILY (1/D)
     Route: 048
  9. GLIMEPIRIDE [Concomitant]
     Indication: DIABETES MELLITUS
     Dosage: 2 MG, DAILY (1/D)
     Route: 048
  10. BYETTA [Suspect]
     Dosage: 10 UG, 2/D
     Dates: start: 20080515, end: 20080722
  11. LISINOPRIL [Concomitant]
     Dosage: 40 MG, DAILY (1/D)
     Route: 048
  12. PEPCID [Concomitant]
     Dosage: 20 MG, 2/D
     Route: 048
  13. ACETAMINOPHEN [Concomitant]
     Dosage: 650 MG, AS NEEDED
  14. LASIX [Concomitant]
     Indication: FLUID RETENTION
     Dosage: 40 MG, DAILY (1/D)
     Route: 048
  15. ASA [Concomitant]
     Dosage: 325 MG, DAILY (1/D)
  16. CARVEDILOL [Concomitant]
     Indication: CORONARY ARTERY DISEASE
     Dosage: 25 MG, 2/D
     Route: 048

REACTIONS (3)
  - PANCREATITIS ACUTE [None]
  - PANCREATIC MASS [None]
  - RENAL DISORDER [None]
